FAERS Safety Report 18946446 (Version 3)
Quarter: 2024Q3

REPORT INFORMATION
  Report Type: Spontaneous
  Country: US (occurrence: US)
  Receive Date: 20210226
  Receipt Date: 20240816
  Transmission Date: 20241016
  Serious: Yes (Hospitalization, Other)
  Sender: PURDUE
  Company Number: US-PURDUE-USA-2020-0210199

PATIENT
  Sex: Male

DRUGS (14)
  1. OXYCONTIN [Suspect]
     Active Substance: OXYCODONE HYDROCHLORIDE
     Indication: Pain
     Dosage: UNK
     Route: 048
  2. OXYCODONE HYDROCHLORIDE [Suspect]
     Active Substance: OXYCODONE HYDROCHLORIDE
     Indication: Product used for unknown indication
     Dosage: 30 MILLIGRAM, QID
     Route: 048
  3. OXYCODONE HYDROCHLORIDE [Suspect]
     Active Substance: OXYCODONE HYDROCHLORIDE
     Indication: Pain
     Dosage: 30 MG, UNK
     Route: 048
  4. MORPHINE SULFATE [Suspect]
     Active Substance: MORPHINE SULFATE
     Indication: Pain
     Dosage: 30 MG, UNK
     Route: 048
  5. DILAUDID [Suspect]
     Active Substance: HYDROMORPHONE HYDROCHLORIDE
     Indication: Pain
     Dosage: 8 MG, UNK
     Route: 048
  6. HYDROMORPHONE HYDROCHLORIDE [Suspect]
     Active Substance: HYDROMORPHONE HYDROCHLORIDE
     Indication: Product used for unknown indication
     Dosage: 8 MILLIGRAM, BID
     Route: 048
  7. MORPHINE SULFATE [Suspect]
     Active Substance: MORPHINE SULFATE
     Indication: Product used for unknown indication
     Dosage: UNKNOWN
     Route: 065
  8. TRAMADOL [Suspect]
     Active Substance: TRAMADOL\TRAMADOL HYDROCHLORIDE
     Indication: Pain
     Dosage: 50 MG, UNK
     Route: 048
  9. IBUPROFEN [Suspect]
     Active Substance: IBUPROFEN
     Indication: Pain
     Dosage: 800 MG, UNK
     Route: 065
  10. IBUPROFEN [Suspect]
     Active Substance: IBUPROFEN
     Dosage: 800 MILLIGRAM, TID
     Route: 048
  11. ONDANSETRON [Suspect]
     Active Substance: ONDANSETRON
     Indication: Nausea
     Dosage: 4 MG, UNK
     Route: 048
  12. DIAZEPAM [Suspect]
     Active Substance: DIAZEPAM
     Indication: Product used for unknown indication
     Dosage: 15 MG, UNK
     Route: 065
  13. DIAZEPAM [Suspect]
     Active Substance: DIAZEPAM
     Dosage: 10 MILLIGRAM, NOCTE
     Route: 048
  14. VALIUM [Suspect]
     Active Substance: DIAZEPAM
     Indication: Product used for unknown indication
     Dosage: UNK
     Route: 065

REACTIONS (13)
  - Hospitalisation [Unknown]
  - Suicidal ideation [Unknown]
  - Pain [Unknown]
  - Depression [Unknown]
  - Overdose [Unknown]
  - Drug dependence [Unknown]
  - Drug abuse [Unknown]
  - Drug withdrawal syndrome [Recovered/Resolved]
  - Emotional distress [Unknown]
  - Constipation [Unknown]
  - Memory impairment [Unknown]
  - Incorrect drug administration rate [Unknown]
  - Drug ineffective [Unknown]
